FAERS Safety Report 22370455 (Version 1)
Quarter: 2023Q2

REPORT INFORMATION
  Report Type: Spontaneous
  Country: JP (occurrence: JP)
  Receive Date: 20230526
  Receipt Date: 20230526
  Transmission Date: 20230722
  Serious: Yes (Other)
  Sender: FDA-Public Use
  Company Number: JP-GILEAD-2023-0629569

PATIENT
  Age: 58 Year
  Sex: Female

DRUGS (4)
  1. VEKLURY [Suspect]
     Active Substance: REMDESIVIR
     Indication: COVID-19
     Dosage: UNK
     Route: 065
  2. VEKLURY [Suspect]
     Active Substance: REMDESIVIR
     Indication: Pneumonia
     Dosage: UNK
     Route: 065
  3. VEKLURY [Suspect]
     Active Substance: REMDESIVIR
     Indication: COVID-19
  4. RITUXIMAB [Concomitant]
     Active Substance: RITUXIMAB
     Indication: Lymphoma

REACTIONS (2)
  - Pneumonia [Recovering/Resolving]
  - COVID-19 [Recovering/Resolving]
